FAERS Safety Report 19774014 (Version 1)
Quarter: 2021Q3

REPORT INFORMATION
  Report Type: Spontaneous
  Country: ES (occurrence: ES)
  Receive Date: 20210831
  Receipt Date: 20210831
  Transmission Date: 20211014
  Serious: Yes (Hospitalization, Other)
  Sender: FDA-Public Use
  Company Number: ES-SA-2021SA286046

PATIENT
  Age: 2 Year
  Sex: Female

DRUGS (1)
  1. RIFAMPICIN [Suspect]
     Active Substance: RIFAMPIN
     Indication: TUBERCULOSIS
     Dosage: 6.5 ML, QD (FASTING IN THE MORNING)
     Route: 048
     Dates: start: 20200519, end: 20200619

REACTIONS (2)
  - Hepatitis [Recovered/Resolved]
  - Eosinophilia [Recovered/Resolved]
